FAERS Safety Report 8212711-0 (Version None)
Quarter: 2012Q1

REPORT INFORMATION
  Report Type: 
  Country: None (occurrence: None)
  Receive Date: 20120315
  Receipt Date: 20120312
  Transmission Date: 20120608
  Serious: No
  Sender: FDA-Public Use
  Company Number: US-PFIZER INC-2012052156

PATIENT
  Sex: Female

DRUGS (2)
  1. CENTRUM SILVER ULTRA WOMEN'S [Suspect]
     Dosage: UNK
  2. ADVIL PM [Suspect]
     Dosage: UNK

REACTIONS (2)
  - ABDOMINAL DISCOMFORT [None]
  - NAUSEA [None]
